FAERS Safety Report 7710389-3 (Version None)
Quarter: 2011Q3

REPORT INFORMATION
  Report Type: 
  Country: None (occurrence: None)
  Receive Date: 20110825
  Receipt Date: 20110810
  Transmission Date: 20111222
  Serious: Yes (Hospitalization)
  Sender: FDA-Public Use
  Company Number: US-ELI_LILLY_AND_COMPANY-US201010002042

PATIENT
  Sex: Female

DRUGS (5)
  1. METHOTREXATE [Concomitant]
  2. FORTEO [Suspect]
     Dosage: 20 UG, QD
     Route: 065
     Dates: end: 20110428
  3. FORTEO [Suspect]
     Indication: OSTEOPOROSIS
     Dosage: 20 UG, DAILY (1/D)
     Route: 065
     Dates: start: 20100901
  4. FORTEO [Suspect]
     Dosage: 20 UG, QD
  5. PREDNISONE [Concomitant]
     Indication: RHEUMATOID ARTHRITIS
     Dosage: 5 MG, UNK

REACTIONS (12)
  - FATIGUE [None]
  - MEDICATION ERROR [None]
  - PAIN IN EXTREMITY [None]
  - FEELING ABNORMAL [None]
  - INJECTION SITE PAIN [None]
  - DYSSTASIA [None]
  - CLOSTRIDIAL INFECTION [None]
  - MALAISE [None]
  - DIZZINESS [None]
  - LOCALISED INFECTION [None]
  - VERTIGO [None]
  - DRUG DOSE OMISSION [None]
